FAERS Safety Report 7605757-4 (Version None)
Quarter: 2011Q3

REPORT INFORMATION
  Report Type: 
  Country: None (occurrence: None)
  Receive Date: 20110713
  Receipt Date: 20110704
  Transmission Date: 20111222
  Serious: Yes (Other)
  Sender: FDA-Public Use
  Company Number: IT-BAYER-2011-057606

PATIENT
  Age: 50 Year
  Sex: Female

DRUGS (1)
  1. CIPROFLOXACIN [Suspect]
     Indication: INFLUENZA
     Dosage: DAILY DOSE 1 DF
     Route: 048
     Dates: start: 20110509, end: 20110511

REACTIONS (3)
  - VOMITING [None]
  - NAUSEA [None]
  - DYSENTERY [None]
